FAERS Safety Report 17592856 (Version 1)
Quarter: 2020Q1

REPORT INFORMATION
  Report Type: Spontaneous
  Country: FI (occurrence: FI)
  Receive Date: 20200327
  Receipt Date: 20200327
  Transmission Date: 20200409
  Serious: Yes (Disabling, Other)
  Sender: FDA-Public Use
  Company Number: FI-ALLERGAN-2013057US

PATIENT
  Sex: Male

DRUGS (10)
  1. CEFTAZIDIME. [Suspect]
     Active Substance: CEFTAZIDIME
     Indication: ENDOPHTHALMITIS
     Dosage: 2.25 MG
     Route: 047
  2. CEFTAZIDIME. [Suspect]
     Active Substance: CEFTAZIDIME
     Dosage: 1.13 MG
     Route: 047
  3. CLINDAMYCIN. [Suspect]
     Active Substance: CLINDAMYCIN
     Indication: STAPHYLOCOCCAL INFECTION
     Dosage: 600 MG, Q8HR
     Route: 042
  4. VANCOMYCIN [Suspect]
     Active Substance: VANCOMYCIN
     Indication: ENDOPHTHALMITIS
     Dosage: 0.5 MG
     Route: 047
  5. LEVOFLOXACIN. [Suspect]
     Active Substance: LEVOFLOXACIN
     Indication: ENDOPHTHALMITIS
     Dosage: 500 MG
     Route: 048
  6. VANCOMYCIN [Suspect]
     Active Substance: VANCOMYCIN
     Dosage: 1 MG
     Route: 047
  7. PREDNISOLONE UNK [Suspect]
     Active Substance: PREDNISOLONE
     Indication: ENDOPHTHALMITIS
     Dosage: UNK UNK, Q2HR
     Route: 047
  8. RIFAMPICIN [Suspect]
     Active Substance: RIFAMPIN
     Indication: ENDOPHTHALMITIS
     Route: 048
  9. LEVOFLOXACIN EYE DROPS [Suspect]
     Active Substance: LEVOFLOXACIN
     Indication: ENDOPHTHALMITIS
     Dosage: HOURLY
     Route: 047
  10. RIFAMPICIN [Suspect]
     Active Substance: RIFAMPIN
     Indication: STAPHYLOCOCCAL INFECTION

REACTIONS (2)
  - Off label use [Unknown]
  - Endophthalmitis [Recovered/Resolved]
